FAERS Safety Report 8828217 (Version 1)
Quarter: 2012Q4

REPORT INFORMATION
  Report Type: 
  Country: IT (occurrence: IT)
  Receive Date: 20121005
  Receipt Date: 20121005
  Transmission Date: 20130627
  Serious: Yes (Other)
  Sender: FDA-Public Use
  Company Number: IT-PFIZER INC-2012244631

PATIENT
  Age: 41 Year
  Sex: Female

DRUGS (3)
  1. LYRICA [Suspect]
     Indication: ANXIETY
     Dosage: 25 mg, 3x/day
     Dates: start: 20120926
  2. HALDOL [Suspect]
     Indication: PSYCHOTIC DISORDER
     Dosage: 100 mg, once every 2 weeks
  3. METFORMIN [Concomitant]
     Indication: HYPERGLYCAEMIA

REACTIONS (12)
  - Off label use [Unknown]
  - Hallucination [Not Recovered/Not Resolved]
  - Schizophreniform disorder [Not Recovered/Not Resolved]
  - Obsessive thoughts [Recovering/Resolving]
  - Persecutory delusion [Not Recovered/Not Resolved]
  - Nasal odour [Not Recovered/Not Resolved]
  - Pain in extremity [Not Recovered/Not Resolved]
  - Amnesia [Not Recovered/Not Resolved]
  - Somnolence [Not Recovered/Not Resolved]
  - Female sexual arousal disorder [Not Recovered/Not Resolved]
  - Weight increased [Not Recovered/Not Resolved]
  - Thought blocking [Not Recovered/Not Resolved]
